FAERS Safety Report 6442714-8 (Version None)
Quarter: 2009Q4

REPORT INFORMATION
  Report Type: 
  Country: None (occurrence: None)
  Receive Date: 20091117
  Receipt Date: 20091109
  Transmission Date: 20100525
  Serious: Yes (Death, Hospitalization, Other)
  Sender: FDA-Public Use
  Company Number: US-ROCHE-649085

PATIENT
  Sex: Male

DRUGS (2)
  1. CELLCEPT [Suspect]
     Indication: RHEUMATOID ARTHRITIS
     Route: 048
     Dates: start: 20071205
  2. CELLCEPT [Suspect]
     Route: 048
     Dates: start: 20080407

REACTIONS (6)
  - CHRONIC OBSTRUCTIVE PULMONARY DISEASE [None]
  - EXPOSURE TO CHEMICAL POLLUTION [None]
  - IMMUNODEFICIENCY [None]
  - NEOPLASM [None]
  - PNEUMONIA VIRAL [None]
  - RHEUMATOID LUNG [None]
